FAERS Safety Report 8255178-9 (Version None)
Quarter: 2012Q1

REPORT INFORMATION
  Report Type: 
  Country: None (occurrence: None)
  Receive Date: 20120322
  Receipt Date: 20120209
  Transmission Date: 20120608
  Serious: Yes (Hospitalization)
  Sender: FDA-Public Use
  Company Number: UTC-015456

PATIENT
  Age: 56 Year
  Sex: Female
  Weight: 61.36 kg

DRUGS (4)
  1. TRACLEER [Concomitant]
  2. COUMADIN [Concomitant]
  3. TYVASO [Suspect]
     Indication: PULMONARY ARTERIAL HYPERTENSION
     Dosage: (54 MCG) , INHALATION
     Route: 055
     Dates: start: 20090914
  4. DIURETICS (DIURETICS) [Concomitant]

REACTIONS (1)
  - PULMONARY TOXICITY [None]
